FAERS Safety Report 5952876-4 (Version None)
Quarter: 2008Q4

REPORT INFORMATION
  Report Type: 
  Country: None (occurrence: None)
  Receive Date: 20081114
  Receipt Date: 20081107
  Transmission Date: 20090506
  Serious: Yes (Other)
  Sender: FDA-Public Use
  Company Number: CA-ASTRAZENECA-2008UW22698

PATIENT
  Age: 65 Year
  Sex: Male
  Weight: 103 kg

DRUGS (3)
  1. SYMBICORT [Suspect]
     Indication: ASTHMA
     Route: 055
     Dates: start: 20050101
  2. LIPITOR [Concomitant]
  3. METFORMIN HCL [Concomitant]

REACTIONS (4)
  - BALANCE DISORDER [None]
  - DYSGEUSIA [None]
  - DYSPHONIA [None]
  - VERTIGO [None]
